FAERS Safety Report 16427452 (Version 2)
Quarter: 2019Q3

REPORT INFORMATION
  Report Type: Report from Study
  Country: CA (occurrence: CA)
  Receive Date: 20190613
  Receipt Date: 20190705
  Transmission Date: 20191004
  Serious: Yes (Hospitalization, Other)
  Sender: FDA-Public Use
  Company Number: CA-BRISTOL-MYERS SQUIBB COMPANY-BMS-2018-082846

PATIENT
  Age: 78 Year
  Sex: Male

DRUGS (1)
  1. ABATACEPT [Suspect]
     Active Substance: ABATACEPT
     Indication: RHEUMATOID ARTHRITIS
     Dosage: 750 MILLIGRAM, Q4WK
     Route: 042
     Dates: start: 20171120

REACTIONS (8)
  - Atrial fibrillation [Unknown]
  - Pruritus [Unknown]
  - Asthma [Unknown]
  - Cardiac disorder [Unknown]
  - Rash [Unknown]
  - Dry skin [Unknown]
  - Acne [Unknown]
  - Erythema [Unknown]

NARRATIVE: CASE EVENT DATE: 20190601
